FAERS Safety Report 24805213 (Version 1)
Quarter: 2025Q1

REPORT INFORMATION
  Report Type: Report from Study
  Country: EG (occurrence: EG)
  Receive Date: 20250103
  Receipt Date: 20250103
  Transmission Date: 20250409
  Serious: Yes (Other)
  Sender: NOVARTIS
  Company Number: EG-002147023-NVSC2024EG247432

PATIENT
  Sex: Male
  Weight: 82 kg

DRUGS (14)
  1. ENTRESTO [Suspect]
     Active Substance: SACUBITRIL\VALSARTAN
     Indication: Cardiac failure
     Dosage: 50 MG, QD (1 TABLET ONCE DAILY), END DATE: AFTER 3-4 MONTHS OF START DATE
     Route: 048
  2. ENTRESTO [Suspect]
     Active Substance: SACUBITRIL\VALSARTAN
     Dosage: 100 MG, QD (1 TABLET ONCE DAILY THEN 2 TABLETS TWICE DAILY)
     Route: 048
     Dates: end: 202407
  3. ENTRESTO [Suspect]
     Active Substance: SACUBITRIL\VALSARTAN
     Dosage: 200 MG, BID (1 TABLET TWICE DAILY)
     Route: 048
     Dates: start: 202407, end: 202409
  4. ENTRESTO [Suspect]
     Active Substance: SACUBITRIL\VALSARTAN
     Dosage: 100 MG, BID (1 TABLET TWICE DAILY)
     Route: 048
     Dates: start: 202409
  5. CARVEDILOL [Concomitant]
     Active Substance: CARVEDILOL
     Indication: Hypertension
     Dosage: 6.25 MG, BID (ONE TABLET TWICE DAILY)
     Route: 048
     Dates: start: 2016
  6. PLAVIX [Concomitant]
     Active Substance: CLOPIDOGREL BISULFATE
     Indication: Cardiac disorder
     Dosage: 75 MG, QD (ONE TABLET ONCE DAILY)
     Route: 048
     Dates: start: 2016
  7. NEXIUM [Concomitant]
     Active Substance: ESOMEPRAZOLE MAGNESIUM
     Indication: Abdominal discomfort
     Dosage: 40 MG, QD (TABLET)
     Route: 048
  8. Diglifloz [Concomitant]
     Indication: Cardiac disorder
     Dosage: 10 MG, QD (TABLET)
     Route: 048
  9. Angiofox [Concomitant]
     Indication: Cardiac disorder
     Dosage: 25 MG, QD (TABLET)
     Route: 048
  10. TORSEMIDE [Concomitant]
     Active Substance: TORSEMIDE
     Indication: Cardiac disorder
     Dosage: 5 MG, QD TABLET
     Route: 048
  11. Randil [Concomitant]
     Indication: Cardiac disorder
     Dosage: 10 MG, BID (HALF TAB TWICE DAILY)
     Route: 048
  12. GABAPENTIN [Concomitant]
     Active Substance: GABAPENTIN
     Indication: Sciatica
     Dosage: 600 MG, BID (TABLET)
     Route: 048
  13. NEUROPATEX [Concomitant]
     Indication: Sciatica
     Dosage: 600 MG, QD
     Route: 048
  14. Zyrovazet [Concomitant]
     Indication: Diabetes mellitus
     Route: 048

REACTIONS (4)
  - Hypotension [Recovered/Resolved]
  - Dizziness [Recovered/Resolved]
  - Nausea [Recovered/Resolved]
  - Off label use [Recovered/Resolved]
